FAERS Safety Report 19310185 (Version 2)
Quarter: 2022Q1

REPORT INFORMATION
  Report Type: Spontaneous
  Country: JP (occurrence: JP)
  Receive Date: 20210526
  Receipt Date: 20220211
  Transmission Date: 20220423
  Serious: Yes (Other)
  Sender: FDA-Public Use
  Company Number: JP-PFIZER INC-2021564004

PATIENT
  Age: 7 Decade
  Sex: Female

DRUGS (1)
  1. CRIZOTINIB [Suspect]
     Active Substance: CRIZOTINIB
     Indication: Lung neoplasm malignant
     Dosage: 500 MG, DAILY

REACTIONS (4)
  - Retinal vasculitis [Recovered/Resolved]
  - Uveitis [Unknown]
  - Papilloedema [Recovered/Resolved]
  - Retinal disorder [Recovered/Resolved]
